FAERS Safety Report 25979159 (Version 1)
Quarter: 2025Q4

REPORT INFORMATION
  Report Type: Report from Study
  Country: EU (occurrence: EU)
  Receive Date: 20251030
  Receipt Date: 20251030
  Transmission Date: 20260117
  Serious: Yes (Death, Hospitalization)
  Sender: ABBVIE
  Company Number: EU-ABBVIE-6404984

PATIENT
  Age: 66 Year
  Sex: Female

DRUGS (3)
  1. FOSCARBIDOPA\FOSLEVODOPA [Suspect]
     Active Substance: FOSCARBIDOPA\FOSLEVODOPA
     Indication: Parkinson^s disease
     Dosage: CRN: 0.22ML/H CR 0,30 ML/H CRH : 0,32 ML/H ,ED 0,15 ML?LAST ADMIN DATE: AUG 2025
     Route: 058
     Dates: start: 20250804
  2. FOSCARBIDOPA\FOSLEVODOPA [Suspect]
     Active Substance: FOSCARBIDOPA\FOSLEVODOPA
     Dosage: CRN: 0.26ML/H CR 0.32 ML/H CRH: 0.34 ML/H, ED 0.15 ML?FIRST ADMIN DATE: AUG 2025?LAST ADMIN DATE:...
     Route: 058
  3. FOSCARBIDOPA\FOSLEVODOPA [Suspect]
     Active Substance: FOSCARBIDOPA\FOSLEVODOPA
     Dosage: CRN: 0.26 ML/H; CR: 0.34 ML/H; CRH: 0.36 ML/H; ED: 0.15 ML?FIRST ADMIN DATE: 2025
     Route: 058

REACTIONS (3)
  - Death [Fatal]
  - On and off phenomenon [Recovering/Resolving]
  - Hospitalisation [Not Recovered/Not Resolved]

NARRATIVE: CASE EVENT DATE: 20250101
